FAERS Safety Report 5592360-3 (Version None)
Quarter: 2008Q1

REPORT INFORMATION
  Report Type: 
  Country: None (occurrence: None)
  Receive Date: 20080115
  Receipt Date: 20080103
  Transmission Date: 20080703
  Serious: Yes (Death, Hospitalization)
  Sender: FDA-Public Use
  Company Number: IL-PFIZER INC-2008002220

PATIENT
  Age: 19 Year
  Sex: Male

DRUGS (2)
  1. ZIPRASIDONE (CAPS) [Suspect]
     Dosage: DAILY DOSE:140MG
  2. CITALOPRAM [Suspect]
     Dosage: DAILY DOSE:20MG

REACTIONS (2)
  - COMPLETED SUICIDE [None]
  - DEPRESSION [None]
